FAERS Safety Report 5834514-4 (Version None)
Quarter: 2008Q3

REPORT INFORMATION
  Report Type: 
  Country: None (occurrence: None)
  Receive Date: 20080805
  Receipt Date: 20080724
  Transmission Date: 20090109
  Serious: Yes (Death)
  Sender: FDA-Public Use
  Company Number: US-PFIZER INC-2008062181

PATIENT
  Sex: Male

DRUGS (2)
  1. VIAGRA [Suspect]
  2. TAMSULOSIN HCL [Interacting]

REACTIONS (1)
  - DRUG INTERACTION [None]
